FAERS Safety Report 17721320 (Version 3)
Quarter: 2020Q2

REPORT INFORMATION
  Report Type: Spontaneous
  Country: TW (occurrence: TW)
  Receive Date: 20200429
  Receipt Date: 20200610
  Transmission Date: 20200714
  Serious: Yes (Hospitalization)
  Sender: FDA-Public Use
  Company Number: TW-ACTELION-A-CH2019-198920

PATIENT
  Age: 67 Year
  Sex: Male

DRUGS (10)
  1. SPIOLTO RESPIMAT [Concomitant]
     Active Substance: OLODATEROL HYDROCHLORIDE\TIOTROPIUM BROMIDE MONOHYDRATE
     Dosage: 2 PUFF, QD
  2. OPSUMIT [Suspect]
     Active Substance: MACITENTAN
     Indication: PULMONARY ARTERIAL HYPERTENSION
     Dosage: 10 MG, QD
     Route: 048
     Dates: start: 2019
  3. UPTRAVI [Suspect]
     Active Substance: SELEXIPAG
     Dosage: EVENING DOSE 200 MCG X 3
     Route: 048
     Dates: start: 20191210
  4. UPTRAVI [Suspect]
     Active Substance: SELEXIPAG
     Dosage: 800 MCG AND 600 MCG
     Route: 048
     Dates: start: 20190924
  5. AVAMYS [Concomitant]
     Active Substance: FLUTICASONE FUROATE
     Dosage: 2 PUFF, QD
  6. TRACETON [Concomitant]
     Dosage: UNK
     Dates: start: 202005
  7. UPTRAVI [Suspect]
     Active Substance: SELEXIPAG
     Dosage: EVENING DOSE 200 MCG X 2
     Route: 048
     Dates: start: 201912
  8. UPTRAVI [Suspect]
     Active Substance: SELEXIPAG
     Indication: PULMONARY ARTERIAL HYPERTENSION
     Dosage: 600 MCG, QD / 400 MCG, QN
     Route: 048
     Dates: start: 20191020
  9. ALDACTONE [Concomitant]
     Active Substance: SPIRONOLACTONE
     Dosage: 25 MG, BID
  10. ADEMPAS [Concomitant]
     Active Substance: RIOCIGUAT
     Indication: PULMONARY ARTERIAL HYPERTENSION
     Dosage: 2.5 MG, TID
     Dates: start: 2018

REACTIONS (19)
  - Muscle spasms [Unknown]
  - Malnutrition [Unknown]
  - Oedema peripheral [Not Recovered/Not Resolved]
  - Pain in jaw [Unknown]
  - Fatigue [Unknown]
  - Swelling [Unknown]
  - Dizziness [Unknown]
  - Syncope [Unknown]
  - Myalgia [Unknown]
  - Decreased appetite [Unknown]
  - Hyponatraemia [Unknown]
  - Ageusia [Unknown]
  - Taste disorder [Unknown]
  - Poor quality sleep [Unknown]
  - Injury [Unknown]
  - Fall [Unknown]
  - Weight decreased [Unknown]
  - Gingival pain [Unknown]
  - Blood electrolytes decreased [Unknown]

NARRATIVE: CASE EVENT DATE: 20191126
